FAERS Safety Report 11080880 (Version 1)
Quarter: 2015Q2

REPORT INFORMATION
  Report Type: Spontaneous
  Country: US (occurrence: None)
  Receive Date: 20150430
  Receipt Date: 20150430
  Transmission Date: 20150821
  Serious: No
  Sender: FDA-Public Use
  Company Number: None

PATIENT
  Age: 70 Year
  Sex: Female

DRUGS (1)
  1. COPAXONE [Suspect]
     Active Substance: GLATIRAMER ACETATE
     Indication: MULTIPLE SCLEROSIS
     Dosage: THERAPY ?2/23, 2/25, 2/27
     Route: 058

REACTIONS (5)
  - Urinary incontinence [None]
  - Unevaluable event [None]
  - Headache [None]
  - Abasia [None]
  - Rash [None]

NARRATIVE: CASE EVENT DATE: 20150301
